FAERS Safety Report 6358237-0 (Version None)
Quarter: 2009Q3

REPORT INFORMATION
  Report Type: 
  Country: None (occurrence: None)
  Receive Date: 20090916
  Receipt Date: 20090908
  Transmission Date: 20100115
  Serious: Yes (Other)
  Sender: FDA-Public Use
  Company Number: US-ABBOTT-09P-163-0596135-00

PATIENT
  Sex: Male
  Weight: 58.566 kg

DRUGS (11)
  1. KALETRA [Suspect]
     Indication: HIV INFECTION
     Route: 048
     Dates: start: 20060101
  2. TRUVADA [Concomitant]
     Indication: HIV INFECTION
     Route: 048
  3. LAMOTRIGINE [Concomitant]
     Indication: STRESS
     Route: 048
  4. LAMOTRIGINE [Concomitant]
     Indication: ANXIETY
  5. BACTRIM DS [Concomitant]
     Indication: DYSURIA
     Route: 048
  6. MIRTAZAPINE [Concomitant]
     Indication: INSOMNIA
     Route: 048
  7. MIRTAZAPINE [Concomitant]
     Indication: PAIN
  8. ZOFRAN [Concomitant]
     Indication: NAUSEA
     Route: 048
  9. DIPHENOXYLATE HCL + ATROPINE SULFATE [Concomitant]
     Indication: DIARRHOEA
     Route: 048
  10. LORAZEPAM [Concomitant]
     Indication: NAUSEA
     Route: 048
  11. LORAZEPAM [Concomitant]
     Indication: VOMITING

REACTIONS (9)
  - COLON CANCER [None]
  - FAECES HARD [None]
  - HIV INFECTION [None]
  - LYMPHADENOPATHY [None]
  - MUSCLE MASS [None]
  - PROCTALGIA [None]
  - RECTAL HAEMORRHAGE [None]
  - RECTAL NEOPLASM [None]
  - URINARY TRACT INFECTION [None]
